FAERS Safety Report 14913311 (Version 1)
Quarter: 2018Q2

REPORT INFORMATION
  Report Type: Report from Study
  Country: US (occurrence: AR)
  Receive Date: 20180518
  Receipt Date: 20180518
  Transmission Date: 20180711
  Serious: Yes (Hospitalization, Other)
  Sender: FDA-Public Use
  Company Number: US-SUNOVION-2018SUN001950

PATIENT
  Sex: Female

DRUGS (2)
  1. CORTICOSTEROIDS [Concomitant]
     Active Substance: CORTICOSTEROID NOS
     Dosage: UNKNOWN
  2. INDACATEROL [Suspect]
     Active Substance: INDACATEROL
     Indication: ASTHMA
     Dosage: UNK, AS NECESSARY
     Route: 065

REACTIONS (13)
  - Helicobacter infection [Unknown]
  - Blood pressure decreased [Unknown]
  - Abdominal discomfort [Unknown]
  - Nervousness [Unknown]
  - Head injury [Unknown]
  - Agitation [Unknown]
  - Drug ineffective [Unknown]
  - Laryngeal oedema [Unknown]
  - Syncope [Unknown]
  - Asthma [Unknown]
  - Fatigue [Unknown]
  - Ulcer [Unknown]
  - General physical health deterioration [Unknown]
